FAERS Safety Report 20680487 (Version 1)
Quarter: 2022Q2

REPORT INFORMATION
  Report Type: Spontaneous
  Country: US (occurrence: US)
  Receive Date: 20220406
  Receipt Date: 20220406
  Transmission Date: 20220720
  Serious: No
  Sender: FDA-Public Use
  Company Number: US-GILEAD-2022-0576469

PATIENT
  Age: 89 Year
  Sex: Male

DRUGS (4)
  1. VEKLURY [Suspect]
     Active Substance: REMDESIVIR
     Indication: COVID-19
     Dosage: UNK
     Route: 042
  2. COVID-19 VACCINE [Concomitant]
     Indication: COVID-19
     Dosage: 1 DOSAGE FORM, ONCE
  3. COVID-19 VACCINE [Concomitant]
     Dosage: 1 DOSAGE FORM, ONCE
  4. COVID-19 VACCINE [Concomitant]
     Dosage: 1 DOSAGE FORM, ONCE

REACTIONS (1)
  - Fatigue [Recovered/Resolved]
